FAERS Safety Report 5383051-2 (Version None)
Quarter: 2007Q2

REPORT INFORMATION
  Report Type: 
  Country: None (occurrence: None)
  Receive Date: 20070629
  Receipt Date: 20061110
  Transmission Date: 20071010
  Serious: Yes (Death, Hospitalization)
  Sender: FDA-Public Use
  Company Number: US200611002326

PATIENT
  Age: 76 Year
  Sex: Male

DRUGS (4)
  1. HUMALOG MIX 75/25 [Suspect]
     Indication: DIABETES MELLITUS
  2. HUMALOG [Suspect]
     Indication: DIABETES MELLITUS
  3. HUMALOG  MIX  25L/75NPL PEN (HUMALOG  MIX 25NPL / 75NPL PEN) PEN, DISP [Concomitant]
  4. HUMALOG PEN [Concomitant]

REACTIONS (4)
  - DEATH [None]
  - MACULAR DEGENERATION [None]
  - MYOCARDIAL INFARCTION [None]
  - PNEUMONIA [None]
